FAERS Safety Report 8938569 (Version 5)
Quarter: 2013Q3

REPORT INFORMATION
  Report Type: Report from Study
  Country: CA (occurrence: CA)
  Receive Date: 20121130
  Receipt Date: 20130702
  Transmission Date: 20140515
  Serious: Yes (Hospitalization)
  Sender: FDA-Public Use
  Company Number: CA-ABBOTT-12P-028-1012170-00

PATIENT
  Age: 17 Year
  Sex: Male

DRUGS (3)
  1. HUMIRA PEN [Suspect]
     Indication: CROHN^S DISEASE
     Route: 058
     Dates: start: 20121026, end: 201211
  2. HUMIRA PEN [Suspect]
     Route: 058
     Dates: start: 20121129
  3. HUMIRA PEN [Suspect]
     Dosage: UNKNOWN FREQUENCY, LAST DOSE: 22 JAN 2013
     Route: 058

REACTIONS (5)
  - Colitis [Unknown]
  - Crohn^s disease [Unknown]
  - Gastrointestinal inflammation [Unknown]
  - Crohn^s disease [Not Recovered/Not Resolved]
  - Anxiety [Unknown]
